FAERS Safety Report 5889992-1 (Version None)
Quarter: 2008Q3

REPORT INFORMATION
  Report Type: 
  Country: None (occurrence: None)
  Receive Date: 20080919
  Receipt Date: 20080911
  Transmission Date: 20090109
  Serious: Yes (Other)
  Sender: FDA-Public Use
  Company Number: US-PFIZER INC-2006069981

PATIENT
  Sex: Female
  Weight: 56.2 kg

DRUGS (1)
  1. XALATAN [Suspect]
     Indication: GLAUCOMA
     Route: 065
     Dates: start: 19930101

REACTIONS (10)
  - CIRCUMSTANCE OR INFORMATION CAPABLE OF LEADING TO MEDICATION ERROR [None]
  - DRUG ADMINISTRATION ERROR [None]
  - EMOTIONAL DISORDER [None]
  - EYE DISORDER [None]
  - EYE IRRITATION [None]
  - EYELID OPERATION [None]
  - EYELID PTOSIS [None]
  - MULTIPLE ALLERGIES [None]
  - OCULAR HYPERAEMIA [None]
  - VISUAL ACUITY REDUCED [None]
